FAERS Safety Report 8381089-4 (Version None)
Quarter: 2012Q2

REPORT INFORMATION
  Report Type: 
  Country: None (occurrence: None)
  Receive Date: 20120523
  Receipt Date: 20120517
  Transmission Date: 20120825
  Serious: Yes (Hospitalization)
  Sender: FDA-Public Use
  Company Number: US-FRI-1000030590

PATIENT
  Age: 63 Year
  Sex: Male

DRUGS (7)
  1. SYNTHROID [Concomitant]
     Indication: HYPOTHYROIDISM
     Dosage: 100 MCG
     Route: 048
  2. METOFORMIN [Concomitant]
     Indication: DIABETES MELLITUS
     Dosage: 500 MG
     Route: 048
     Dates: end: 20120501
  3. DALIRESP [Suspect]
     Indication: CHRONIC OBSTRUCTIVE PULMONARY DISEASE
     Dosage: 500 MCG
     Route: 048
     Dates: start: 20120401, end: 20120516
  4. SPIRIVA [Concomitant]
     Indication: CHRONIC OBSTRUCTIVE PULMONARY DISEASE
     Dosage: 18 MCG
     Route: 048
  5. LASIX [Concomitant]
     Dosage: 80 MG
     Route: 048
  6. ALLOPURINOL [Concomitant]
     Indication: GOUT
     Dosage: 300 MG
     Route: 048
  7. METOLAZONE [Suspect]
     Dates: start: 20120401

REACTIONS (8)
  - NAUSEA [None]
  - DECREASED APPETITE [None]
  - RENAL FAILURE [None]
  - FATIGUE [None]
  - LIVER FUNCTION TEST ABNORMAL [None]
  - INSOMNIA [None]
  - CARDIOMYOPATHY [None]
  - ATRIAL FIBRILLATION [None]
